FAERS Safety Report 8908514 (Version 2)
Quarter: 2013Q2

REPORT INFORMATION
  Report Type: Report from Study
  Country: DE (occurrence: DE)
  Receive Date: 20121114
  Receipt Date: 20130620
  Transmission Date: 20140414
  Serious: Yes (Hospitalization)
  Sender: FDA-Public Use
  Company Number: DE-009507513-1211DEU005329

PATIENT
  Age: 72 Year
  Sex: Male
  Weight: 88 kg

DRUGS (10)
  1. PEGINTRON [Suspect]
     Indication: CHRONIC MYELOID LEUKAEMIA
     Dosage: 30 MICROGRAM, ONCE
     Dates: start: 20121106, end: 20121106
  2. NILOTINIB [Suspect]
     Indication: CHRONIC MYELOID LEUKAEMIA
     Dosage: 300 MG, BID
     Dates: start: 20121106
  3. NILOTINIB [Suspect]
     Dosage: 150 MICROGRAM, TID
     Dates: start: 20130429, end: 20130526
  4. NILOTINIB [Suspect]
     Dosage: UNK
     Dates: start: 20130606
  5. ACTRAPID [Concomitant]
     Indication: DIABETES MELLITUS
     Dosage: UNK
  6. NEBILET [Concomitant]
     Indication: HYPERTENSION
     Dosage: 5 MG, QID
  7. PREDNISOLON [Concomitant]
     Indication: RELAPSING FEVER
     Dosage: 7.5 MG, UNK
     Dates: start: 20120310
  8. L-THYROXIN [Concomitant]
     Indication: THYROID DISORDER
     Dosage: 50 MICROGRAM, UNK
  9. DIGITOXIN [Concomitant]
     Indication: ATRIAL FIBRILLATION
     Dosage: 0.07 MG, UNK
  10. INSULINE NPH [Concomitant]
     Indication: DIABETES MELLITUS
     Dosage: 12 IU, UNK
     Route: 058

REACTIONS (4)
  - Breast pain [Unknown]
  - Dyspnoea [Unknown]
  - Myocardial infarction [Unknown]
  - Febrile infection [Recovered/Resolved]
